FAERS Safety Report 4622769-3 (Version None)
Quarter: 2005Q1

REPORT INFORMATION
  Report Type: 
  Country: None (occurrence: None)
  Receive Date: 20050330
  Receipt Date: 20050321
  Transmission Date: 20050727
  Serious: Yes (Hospitalization)
  Sender: FDA-Public Use
  Company Number: GB-BRISTOL-MYERS SQUIBB COMPANY-12904207

PATIENT
  Age: 53 Year
  Sex: Female
  Weight: 89 kg

DRUGS (9)
  1. ETOPOSIDE [Suspect]
     Indication: OVARIAN CANCER
     Route: 042
     Dates: start: 20050224, end: 20050308
  2. WARFARIN SODIUM [Interacting]
     Indication: CATHETER PLACEMENT
     Dosage: TX HELD
  3. LEVOTHYROXINE [Concomitant]
     Indication: HYPOTHYROIDISM
     Route: 048
  4. CO-DANTHRAMER [Concomitant]
     Dosage: DOSAGE FORM = 2 TABLETS MORNING AND NIGHT
     Route: 048
     Dates: start: 20050210
  5. OMEPRAZOLE [Concomitant]
     Dosage: AM
     Route: 048
     Dates: start: 20050222
  6. METOCLOPRAMIDE [Concomitant]
     Route: 058
     Dates: start: 20050218
  7. OCTREOTIDE [Concomitant]
     Route: 058
     Dates: start: 20050228
  8. DIAMORPHINE [Concomitant]
     Route: 058
     Dates: start: 20050303
  9. DEXAMETHASONE [Concomitant]
     Route: 048
     Dates: start: 20050309

REACTIONS (2)
  - DRUG INTERACTION [None]
  - INTERNATIONAL NORMALISED RATIO INCREASED [None]
